FAERS Safety Report 10072362 (Version 3)
Quarter: 2014Q2

REPORT INFORMATION
  Report Type: Report from Study
  Country: DE (occurrence: DE)
  Receive Date: 20140411
  Receipt Date: 20140417
  Transmission Date: 20141212
  Serious: Yes (Hospitalization, Other)
  Sender: FDA-Public Use
  Company Number: DE-BRISTOL-MYERS SQUIBB COMPANY-19836840

PATIENT
  Sex: Female

DRUGS (8)
  1. ABATACEPT SUBQ INJECTION 125MG/ML [Suspect]
     Indication: RHEUMATOID ARTHRITIS
     Route: 058
     Dates: start: 20130429
  2. METHOTREXATE [Concomitant]
  3. SYNTESTAN [Concomitant]
  4. JODID [Concomitant]
  5. HCTZ [Concomitant]
  6. VITAMIN D3 [Concomitant]
  7. TRAMADOL [Concomitant]
  8. VITAMIN E [Concomitant]

REACTIONS (4)
  - Gastritis [Recovered/Resolved]
  - Diabetes mellitus [Recovering/Resolving]
  - Blood folate decreased [Recovering/Resolving]
  - Hypokalaemia [Recovering/Resolving]
